FAERS Safety Report 5644593-5 (Version None)
Quarter: 2008Q1

REPORT INFORMATION
  Report Type: 
  Country: None (occurrence: None)
  Receive Date: 20080229
  Receipt Date: 20070327
  Transmission Date: 20080703
  Serious: No
  Sender: FDA-Public Use
  Company Number: A0644849A

PATIENT

DRUGS (1)
  1. VALTREX [Suspect]
     Indication: DRUG USE FOR UNKNOWN INDICATION
     Route: 065

REACTIONS (3)
  - HOT FLUSH [None]
  - HYPERHIDROSIS [None]
  - SLEEP DISORDER [None]
